FAERS Safety Report 9475297 (Version 1)
Quarter: 2013Q3

REPORT INFORMATION
  Report Type: Spontaneous
  Country: US (occurrence: US)
  Receive Date: 20130826
  Receipt Date: 20130826
  Transmission Date: 20140515
  Serious: No
  Sender: FDA-Public Use
  Company Number: US-009507513-1308USA010488

PATIENT
  Sex: Female

DRUGS (1)
  1. ZETIA [Suspect]
     Indication: BLOOD CHOLESTEROL ABNORMAL
     Dosage: 10MG/ONE TABLET ONCE DAILY AT NIGHT
     Route: 048
     Dates: start: 20130807

REACTIONS (4)
  - Depression [Unknown]
  - Asthenia [Unknown]
  - Headache [Unknown]
  - Urticaria [Unknown]
